FAERS Safety Report 9361164 (Version 2)
Quarter: 2015Q1

REPORT INFORMATION
  Report Type: Spontaneous
  Country: US (occurrence: None)
  Receive Date: 20130618
  Receipt Date: 20150202
  Transmission Date: 20150721
  Serious: Yes (Hospitalization, Other)
  Sender: FDA-Public Use
  Company Number: TPA2013A05141

PATIENT
  Age: 56 Year
  Sex: Male
  Weight: 77.1 kg

DRUGS (3)
  1. DEXILANT [Suspect]
     Active Substance: DEXLANSOPRAZOLE
     Indication: HIATUS HERNIA
     Dosage: 1 IN 1 D, PER ORAL
     Route: 048
     Dates: end: 20130612
  2. DEXILANT [Suspect]
     Active Substance: DEXLANSOPRAZOLE
     Indication: HERNIA PAIN
     Dosage: 1 IN 1 D, PER ORAL
     Route: 048
     Dates: end: 20130612
  3. WARFARIN [Concomitant]
     Active Substance: WARFARIN

REACTIONS (10)
  - Pulmonary thrombosis [None]
  - Upper respiratory tract infection [None]
  - Nephrolithiasis [None]
  - Infection [None]
  - Intestinal perforation [None]
  - Hip surgery [None]
  - Hip arthroplasty [None]
  - International normalised ratio abnormal [None]
  - Off label use [None]
  - Drug dispensing error [None]

NARRATIVE: CASE EVENT DATE: 20120903
